FAERS Safety Report 14893186 (Version 2)
Quarter: 2018Q3

REPORT INFORMATION
  Report Type: Spontaneous
  Country: DE (occurrence: DE)
  Receive Date: 20180514
  Receipt Date: 20180703
  Transmission Date: 20181010
  Serious: Yes (Hospitalization)
  Sender: FDA-Public Use
  Company Number: DE-NOVOPROD-599056

PATIENT
  Age: 12 Year
  Sex: Female

DRUGS (1)
  1. NOVORAPID [Suspect]
     Active Substance: INSULIN ASPART
     Indication: TYPE 1 DIABETES MELLITUS
     Dosage: 15.2 IE, QD
     Route: 058

REACTIONS (4)
  - Blood glucose increased [Unknown]
  - Diabetic ketosis [Unknown]
  - Liquid product physical issue [Unknown]
  - Product container issue [Unknown]

NARRATIVE: CASE EVENT DATE: 20180502
